FAERS Safety Report 7197708-4 (Version None)
Quarter: 2010Q4

REPORT INFORMATION
  Report Type: 
  Country: None (occurrence: None)
  Receive Date: 20101227
  Receipt Date: 20101217
  Transmission Date: 20110411
  Serious: Yes (Life-Threatening, Hospitalization, Other)
  Sender: FDA-Public Use
  Company Number: PH-SANOFI-AVENTIS-2010SA076652

PATIENT
  Sex: Female

DRUGS (9)
  1. INSULIN GLARGINE [Suspect]
     Route: 058
     Dates: end: 20101218
  2. OPTIPEN [Suspect]
  3. OMACOR [Suspect]
  4. AMLODIPINE [Concomitant]
     Indication: HYPERTENSION
     Dates: start: 20040201
  5. CLOPIDOGREL [Concomitant]
     Indication: MYOCARDIAL INFARCTION
     Dates: start: 20100101
  6. LOVENOX [Concomitant]
     Indication: MYOCARDIAL INFARCTION
     Dates: start: 20100101
  7. ASPIRIN [Concomitant]
     Indication: MYOCARDIAL INFARCTION
     Dates: start: 20100101
  8. ATORVASTATIN [Concomitant]
     Indication: MYOCARDIAL INFARCTION
     Dates: start: 20100101
  9. ISOSORBIDE DINITRATE [Concomitant]
     Indication: MYOCARDIAL INFARCTION
     Dates: start: 20100101

REACTIONS (1)
  - ACUTE MYOCARDIAL INFARCTION [None]
